FAERS Safety Report 9898975 (Version 2)
Quarter: 2014Q1

REPORT INFORMATION
  Report Type: Spontaneous
  Country: US (occurrence: US)
  Receive Date: 20140214
  Receipt Date: 20140321
  Transmission Date: 20141002
  Serious: No
  Sender: FDA-Public Use
  Company Number: US-009507513-1402USA002307

PATIENT
  Sex: Female

DRUGS (2)
  1. DULERA [Suspect]
     Indication: ASTHMA
     Dosage: 1 INHALATION, BID
     Route: 055
     Dates: start: 2013
  2. [THERAPY UNSPECIFIED] [Concomitant]
     Indication: BLOOD PRESSURE

REACTIONS (4)
  - Cough [Recovering/Resolving]
  - Dysphonia [Recovering/Resolving]
  - Throat irritation [Recovering/Resolving]
  - Product quality issue [Unknown]
